FAERS Safety Report 7271226-7 (Version None)
Quarter: 2011Q1

REPORT INFORMATION
  Report Type: 
  Country: None (occurrence: None)
  Receive Date: 20110202
  Receipt Date: 20110121
  Transmission Date: 20110831
  Serious: Yes (Hospitalization, Other)
  Sender: FDA-Public Use
  Company Number: US-JNJCH-2010028889

PATIENT
  Sex: Female

DRUGS (1)
  1. SUDAFED PE SEVERE COLD CAPLET [Suspect]
     Indication: NASOPHARYNGITIS
     Dosage: TEXT:TWO EVERY FOUR HOURS
     Route: 048

REACTIONS (9)
  - DIZZINESS [None]
  - INSOMNIA [None]
  - SENSORY DISTURBANCE [None]
  - PAIN [None]
  - ANXIETY [None]
  - NERVOUSNESS [None]
  - PARAESTHESIA [None]
  - PALPITATIONS [None]
  - IMPAIRED WORK ABILITY [None]
